FAERS Safety Report 21024248 (Version 1)
Quarter: 2022Q2

REPORT INFORMATION
  Report Type: Spontaneous
  Country: US (occurrence: None)
  Receive Date: 20220629
  Receipt Date: 20220629
  Transmission Date: 20220721
  Serious: No
  Sender: FDA-Public Use
  Company Number: None

PATIENT
  Age: 66 Year
  Sex: Female
  Weight: 90 kg

DRUGS (1)
  1. IBRANCE [Suspect]
     Active Substance: PALBOCICLIB
     Indication: Breast cancer female
     Dosage: FREQUENCY : DAILY;?
     Route: 048
     Dates: start: 20180226

REACTIONS (6)
  - Pruritus [None]
  - Fungal infection [None]
  - Erythema [None]
  - Skin disorder [None]
  - Scratch [None]
  - Skin haemorrhage [None]

NARRATIVE: CASE EVENT DATE: 20180226
